FAERS Safety Report 9714577 (Version 2)
Quarter: 2013Q4

REPORT INFORMATION
  Report Type: Spontaneous
  Country: FR (occurrence: FR)
  Receive Date: 20131126
  Receipt Date: 20131126
  Transmission Date: 20140711
  Serious: Yes (Other)
  Sender: FDA-Public Use
  Company Number: FR-ABBVIE-13P-056-1099559-00

PATIENT
  Age: 52 Year
  Sex: Male

DRUGS (9)
  1. HUMIRA [Suspect]
     Indication: PSORIATIC ARTHROPATHY
     Dates: start: 20130123, end: 20130305
  2. GLUCOR [Concomitant]
     Indication: DIABETES MELLITUS
  3. GLUCOPHAGE [Concomitant]
     Indication: PRODUCT USED FOR UNKNOWN INDICATION
  4. AMAREL [Concomitant]
     Indication: PRODUCT USED FOR UNKNOWN INDICATION
  5. SALAZOPYRINE [Concomitant]
     Indication: PSORIASIS
  6. METHOTREXATE [Concomitant]
     Indication: PSORIASIS
     Dosage: 15 MG WEEKLY
     Route: 058
  7. METHOTREXATE [Concomitant]
     Dosage: 20 MG WEEKLY
     Dates: start: 2010
  8. SPECIAFOLDINE [Concomitant]
     Indication: PRODUCT USED FOR UNKNOWN INDICATION
  9. INDOCID [Concomitant]
     Indication: PRODUCT USED FOR UNKNOWN INDICATION

REACTIONS (2)
  - Toxic skin eruption [Unknown]
  - Rash [Unknown]
